FAERS Safety Report 7401361-1 (Version None)
Quarter: 2011Q2

REPORT INFORMATION
  Report Type: 
  Country: None (occurrence: None)
  Receive Date: 20110407
  Receipt Date: 20110331
  Transmission Date: 20111010
  Serious: Yes (Hospitalization)
  Sender: FDA-Public Use
  Company Number: US-RB-020357-11

PATIENT
  Age: 37 Year
  Sex: Male

DRUGS (1)
  1. SUBOXONE [Suspect]
     Indication: PRODUCT USED FOR UNKNOWN INDICATION
     Dosage: SUBOXONE SUBLINGUAL FILM; DOSING INFORMATION UNKNOWN
     Route: 065

REACTIONS (6)
  - THERAPEUTIC RESPONSE UNEXPECTED [None]
  - NAUSEA [None]
  - NEPHROLITHIASIS [None]
  - WEIGHT INCREASED [None]
  - GOUT [None]
  - DYSPHAGIA [None]
